FAERS Safety Report 5735330-4 (Version None)
Quarter: 2008Q2

REPORT INFORMATION
  Report Type: 
  Country: None (occurrence: None)
  Receive Date: 20080508
  Receipt Date: 20080508
  Transmission Date: 20081010
  Serious: Yes (Other)
  Sender: FDA-Public Use
  Company Number: None

PATIENT

DRUGS (2)
  1. BUPIVACAINE [Suspect]
     Indication: SPINAL ANAESTHESIA
     Dosage: X1 EACH PATIENT  IT
     Dates: start: 20080429, end: 20080506
  2. BUPIVACAINE [Suspect]

REACTIONS (1)
  - DRUG INEFFECTIVE [None]
